FAERS Safety Report 4849571-1 (Version None)
Quarter: 2005Q4

REPORT INFORMATION
  Report Type: 
  Country: None (occurrence: None)
  Receive Date: 20051207
  Receipt Date: 20051124
  Transmission Date: 20060501
  Serious: Yes (Other)
  Sender: FDA-Public Use
  Company Number: 2005106023

PATIENT
  Age: 33 Year
  Sex: Female

DRUGS (3)
  1. ZYVOX [Suspect]
     Indication: INFECTION
     Dosage: 1200 MG (600 MG, BID INTERVAL:  EVERY DAY), ORAL
     Route: 048
     Dates: start: 20050101, end: 20050701
  2. RIFAMPICIN (FIFAMPICIN) [Concomitant]
  3. ANTIBIOTICS (ANTIBIOTICS) [Concomitant]

REACTIONS (1)
  - TACHYCARDIA [None]
